FAERS Safety Report 4867230-6 (Version None)
Quarter: 2005Q4

REPORT INFORMATION
  Report Type: 
  Country: None (occurrence: None)
  Receive Date: 20051222
  Receipt Date: 20051213
  Transmission Date: 20060501
  Serious: Yes (Other)
  Sender: FDA-Public Use
  Company Number: 2005159985

PATIENT
  Age: 51 Year
  Sex: Female

DRUGS (4)
  1. LYRICA [Suspect]
     Indication: EPILEPSY
     Dosage: 75 MG (75  MG, 1 IN 1 D), ORAL
     Route: 048
     Dates: start: 20051109, end: 20051110
  2. LAMICTAL [Concomitant]
  3. TOPAMAX [Concomitant]
  4. EFFEXOR XR [Concomitant]

REACTIONS (3)
  - ABASIA [None]
  - CONDITION AGGRAVATED [None]
  - CONVULSION [None]
